FAERS Safety Report 5199521-6 (Version None)
Quarter: 2006Q4

REPORT INFORMATION
  Report Type: 
  Country: None (occurrence: None)
  Receive Date: 20061229
  Receipt Date: 20061214
  Transmission Date: 20070319
  Serious: Yes (Hospitalization)
  Sender: FDA-Public Use
  Company Number: 6028208

PATIENT
  Age: 78 Year
  Sex: Female

DRUGS (8)
  1. BISOPROLOL FUMARATE [Suspect]
     Indication: ESSENTIAL HYPERTENSION
     Dosage: ORAL
     Route: 048
     Dates: end: 20061023
  2. PERINDOPRIL ERBUMINE [Suspect]
     Indication: ESSENTIAL HYPERTENSION
     Dosage: ORAL
     Route: 048
     Dates: start: 20061001, end: 20061023
  3. FUROSEMIDE [Suspect]
     Indication: ESSENTIAL HYPERTENSION
     Dosage: SEE IMAGE
     Dates: end: 20061023
  4. ALLOPURINOL [Concomitant]
  5. AMARYL [Concomitant]
  6. PLAVIX [Concomitant]
  7. GLUCOPHAGE [Concomitant]
  8. KAYEXALATE [Concomitant]

REACTIONS (4)
  - ECZEMA [None]
  - EOSINOPHIL COUNT INCREASED [None]
  - PHOTOSENSITIVITY REACTION [None]
  - PRURITUS [None]
